FAERS Safety Report 17487851 (Version 1)
Quarter: 2020Q1

REPORT INFORMATION
  Report Type: Spontaneous
  Country: FR (occurrence: FR)
  Receive Date: 20200303
  Receipt Date: 20200303
  Transmission Date: 20200409
  Serious: Yes (Death, Congenital Anomaly, Other)
  Sender: FDA-Public Use
  Company Number: FR-PFIZER INC-2020090095

PATIENT

DRUGS (6)
  1. TRAMADOL HYDROCHLORIDE. [Suspect]
     Active Substance: TRAMADOL HYDROCHLORIDE
     Indication: PAIN
     Dosage: 100 MG, 1X/DAY
     Route: 064
     Dates: start: 20191018, end: 20200124
  2. VENLAFAXINE HCL [Suspect]
     Active Substance: VENLAFAXINE HYDROCHLORIDE
     Indication: BIPOLAR DISORDER
     Dosage: 100 MG, 1X/DAY
     Route: 064
     Dates: start: 20191018, end: 20200124
  3. HYDROXYZINE HYDROCHLORIDE. [Suspect]
     Active Substance: HYDROXYZINE HYDROCHLORIDE
     Indication: BIPOLAR DISORDER
     Dosage: 25 MG, 1X/DAY
     Route: 064
     Dates: start: 20191018, end: 20200124
  4. INSULINE [INSULIN PORCINE] [Suspect]
     Active Substance: INSULIN PORK\INSULIN PURIFIED PORK
     Indication: TYPE 2 DIABETES MELLITUS
     Dosage: UNK
     Route: 064
     Dates: start: 20191218, end: 20200124
  5. QUETIAPINE. [Suspect]
     Active Substance: QUETIAPINE
     Indication: BIPOLAR DISORDER
     Dosage: 400 MG, 1X/DAY
     Route: 064
     Dates: start: 20191018, end: 20200124
  6. OMEPRAZOLE. [Suspect]
     Active Substance: OMEPRAZOLE
     Indication: PROPHYLAXIS
     Dosage: 20 MG, 1X/DAY
     Route: 064
     Dates: start: 20191018, end: 20200124

REACTIONS (5)
  - Heart disease congenital [Fatal]
  - Congenital hand malformation [Fatal]
  - Spine malformation [Fatal]
  - Congenital central nervous system anomaly [Fatal]
  - Exposure during pregnancy [Fatal]

NARRATIVE: CASE EVENT DATE: 20191227
